FAERS Safety Report 21292587 (Version 1)
Quarter: 2022Q3

REPORT INFORMATION
  Report Type: Spontaneous
  Country: FI (occurrence: FI)
  Receive Date: 20220905
  Receipt Date: 20220905
  Transmission Date: 20221027
  Serious: Yes (Other)
  Sender: FDA-Public Use
  Company Number: FI-SUN PHARMACEUTICAL INDUSTRIES LTD-2022R1-353263

PATIENT
  Sex: Male
  Weight: 2.02 kg

DRUGS (12)
  1. BACLOFEN [Suspect]
     Active Substance: BACLOFEN
     Indication: Product used for unknown indication
     Dosage: UNK
     Route: 064
  2. CEPHALEXIN [Suspect]
     Active Substance: CEPHALEXIN
     Indication: Urinary tract infection
     Dosage: UNK
     Route: 064
  3. IRON SUCROSE [Suspect]
     Active Substance: IRON SUCROSE
     Indication: Haemoglobin decreased
     Dosage: 800 MILLIGRAM
     Route: 064
  4. IRON SUCROSE [Suspect]
     Active Substance: IRON SUCROSE
     Indication: Fatigue
  5. IRON SUCROSE [Suspect]
     Active Substance: IRON SUCROSE
     Indication: Dyspnoea
  6. TIZANIDINE [Suspect]
     Active Substance: TIZANIDINE
     Indication: Product used for unknown indication
     Dosage: UNK
     Route: 064
  7. TOLTERODINE [Suspect]
     Active Substance: TOLTERODINE
     Indication: Product used for unknown indication
     Dosage: UNK
     Route: 064
  8. BETAMETHASONE [Suspect]
     Active Substance: BETAMETHASONE
     Indication: Maternal therapy to enhance foetal lung maturity
     Dosage: 12 MILLIGRAM
     Route: 064
  9. DALTEPARIN [Suspect]
     Active Substance: DALTEPARIN
     Indication: Prophylaxis
     Dosage: 2500 IU 1 X 1
     Route: 064
  10. METHENAMINE [Suspect]
     Active Substance: METHENAMINE
     Indication: Urinary tract infection
     Dosage: UNK
     Route: 064
  11. AMDINOCILLIN PIVOXIL [Suspect]
     Active Substance: AMDINOCILLIN PIVOXIL
     Indication: Urinary tract infection
     Dosage: UNK
     Route: 064
  12. THYROXINE [Suspect]
     Active Substance: LEVOTHYROXINE
     Indication: Product used for unknown indication
     Route: 064

REACTIONS (3)
  - Foetal exposure during pregnancy [Unknown]
  - Premature baby [Unknown]
  - Low birth weight baby [Unknown]
